FAERS Safety Report 10712065 (Version 2)
Quarter: 2015Q1

REPORT INFORMATION
  Report Type: Report from Study
  Country: US (occurrence: US)
  Receive Date: 20150114
  Receipt Date: 20150121
  Transmission Date: 20150721
  Serious: Yes (Other)
  Sender: FDA-Public Use
  Company Number: US-BIOMARINAP-US-2013-101878

PATIENT
  Age: 15 Year
  Sex: Male
  Weight: 33 kg

DRUGS (2)
  1. BMN 110 [Suspect]
     Active Substance: ELOSULFASE ALFA
     Indication: MUCOPOLYSACCHARIDOSIS IV
     Dosage: 2 MG/KG, QW
     Route: 041
     Dates: start: 20120201
  2. VIMIZIM [Concomitant]
     Active Substance: ELOSULFASE ALFA
     Indication: MUCOPOLYSACCHARIDOSIS IV
     Dosage: 65 MG, QW
     Route: 042
     Dates: start: 20140801

REACTIONS (1)
  - Tracheal disorder [Not Recovered/Not Resolved]

NARRATIVE: CASE EVENT DATE: 20131010
